FAERS Safety Report 17856400 (Version 2)
Quarter: 2020Q2

REPORT INFORMATION
  Report Type: Report from Study
  Country: ES (occurrence: ES)
  Receive Date: 20200603
  Receipt Date: 20200605
  Transmission Date: 20200714
  Serious: Yes (Death)
  Sender: FDA-Public Use
  Company Number: ES-ROCHE-2610151

PATIENT
  Age: 77 Year
  Sex: Male

DRUGS (15)
  1. MIRABEGRON [Concomitant]
     Active Substance: MIRABEGRON
     Indication: BENIGN PROSTATIC HYPERPLASIA
     Route: 065
     Dates: start: 20150325
  2. BRINZOLAMIDA [Concomitant]
     Indication: GLAUCOMA
     Route: 065
     Dates: start: 20090617
  3. SIMVASTATINA [Concomitant]
     Active Substance: SIMVASTATIN
     Indication: DYSLIPIDAEMIA
     Route: 065
     Dates: start: 20190919
  4. PREDNICARBATE. [Concomitant]
     Active Substance: PREDNICARBATE
     Indication: SKIN TOXICITY
     Route: 061
     Dates: start: 20200117
  5. ATEZOLIZUMAB. [Suspect]
     Active Substance: ATEZOLIZUMAB
     Indication: NON-SMALL CELL LUNG CANCER
     Dosage: DATE OF MOST RECENT DOSE (1200 MG) OF BLINDED ATEZOLIZUMAB PRIOR TO AE ONSET: 28/FEB/2020
     Route: 042
     Dates: start: 20191218
  6. CARBOPLATIN. [Suspect]
     Active Substance: CARBOPLATIN
     Indication: NON-SMALL CELL LUNG CANCER
     Dosage: INITIAL TARGET AUC OF 6 MG/ML/MIN ?DATE OF MOST RECENT DOSE OF CARBOPLATIN (410 MG) PRIOR TO AE ONSE
     Route: 042
     Dates: start: 20191218
  7. OMEPRAZOL [OMEPRAZOLE] [Concomitant]
     Active Substance: OMEPRAZOLE
     Route: 065
     Dates: start: 20191111
  8. DUTASTERIDA [Concomitant]
     Active Substance: DUTASTERIDE
     Indication: BENIGN PROSTATIC HYPERPLASIA
     Route: 065
     Dates: start: 20140828
  9. NITROGLYCERINE [Concomitant]
     Active Substance: NITROGLYCERIN
     Route: 065
     Dates: start: 20160311
  10. NAB-PACLITAXEL [Suspect]
     Active Substance: PACLITAXEL
     Indication: NON-SMALL CELL LUNG CANCER
     Dosage: DATE OF MOST RECENT DOSE OF NAB-PACLITAXEL (100 MG) PRIOR TO AE ONSET:28/FEB/2020
     Route: 042
     Dates: start: 20191218
  11. TRAMADOL. [Concomitant]
     Active Substance: TRAMADOL
     Indication: PAIN
     Route: 065
     Dates: start: 20150821
  12. TAMSULOSINA [TAMSULOSIN] [Concomitant]
     Active Substance: TAMSULOSIN
     Indication: BENIGN PROSTATIC HYPERPLASIA
     Route: 065
     Dates: start: 20140828
  13. TOCOPHEROL [Concomitant]
     Active Substance: TOCOPHEROL
     Indication: GLAUCOMA
  14. HEPARIN [Concomitant]
     Active Substance: HEPARIN SODIUM
     Route: 065
     Dates: start: 20200103
  15. PARACETAMOL [Concomitant]
     Active Substance: ACETAMINOPHEN
     Indication: PAIN
     Route: 065
     Dates: start: 20150821

REACTIONS (3)
  - Pneumonitis [Recovering/Resolving]
  - Respiratory failure [Fatal]
  - Interstitial lung disease [Fatal]

NARRATIVE: CASE EVENT DATE: 20200319
